FAERS Safety Report 20052068 (Version 8)
Quarter: 2023Q4

REPORT INFORMATION
  Report Type: Other
  Country: US (occurrence: None)
  Receive Date: 20211110
  Receipt Date: 20231108
  Transmission Date: 20240109
  Serious: No
  Sender: FDA-Public Use
  Company Number: US-ROCHE-2949547

PATIENT
  Age: 62 Year
  Sex: Female
  Weight: 74.91 kg

DRUGS (11)
  1. OCREVUS [Suspect]
     Active Substance: OCRELIZUMAB
     Indication: Relapsing-remitting multiple sclerosis
     Route: 042
     Dates: start: 20180622, end: 202010
  2. OCREVUS [Suspect]
     Active Substance: OCRELIZUMAB
     Route: 042
     Dates: start: 20210422, end: 202204
  3. OCREVUS [Suspect]
     Active Substance: OCRELIZUMAB
     Route: 042
     Dates: start: 2018, end: 202305
  4. CIPRO [Suspect]
     Active Substance: CIPROFLOXACIN HYDROCHLORIDE
     Indication: Urinary tract infection
     Dosage: TOOK FOR 5 DAYS
     Route: 048
     Dates: start: 20221008, end: 20221013
  5. MAVENCLAD [Suspect]
     Active Substance: CLADRIBINE
     Indication: Relapsing-remitting multiple sclerosis
     Dosage: 2 FIRST DAY, 2 SECOND DAY, ONCE EVERY DAY FOR NEXT 3 DAYS
     Route: 048
     Dates: start: 202010, end: 20230213
  6. MAVENCLAD [Suspect]
     Active Substance: CLADRIBINE
     Dosage: 2 TABLETS DAILY FOR 2 DAYS, THEN ONE TABLET PER DAY FOR 3 DAYS
     Route: 048
     Dates: start: 2022
  7. AMPYRA [Concomitant]
     Active Substance: DALFAMPRIDINE
     Indication: Gait disturbance
     Dosage: YES
     Route: 048
  8. TOLTERODINE [Concomitant]
     Active Substance: TOLTERODINE
     Indication: Micturition urgency
     Dosage: YES
     Route: 048
  9. CYCLOBENZAPRINE [Concomitant]
     Active Substance: CYCLOBENZAPRINE
     Indication: Muscle spasms
     Dosage: PRN ;ONGOING: YES
     Route: 048
  10. BACLOFEN [Concomitant]
     Active Substance: BACLOFEN
     Indication: Muscle spasms
     Dosage: PRN ;ONGOING: YES
     Route: 048
  11. LATANOPROST [Concomitant]
     Active Substance: LATANOPROST
     Indication: Normal tension glaucoma
     Route: 047

REACTIONS (12)
  - Urinary tract infection [Recovering/Resolving]
  - COVID-19 [Recovered/Resolved]
  - Immunodeficiency [Not Recovered/Not Resolved]
  - Tooth infection [Not Recovered/Not Resolved]
  - Vertigo [Recovered/Resolved]
  - Gait disturbance [Not Recovered/Not Resolved]
  - Weight decreased [Not Recovered/Not Resolved]
  - Fall [Unknown]
  - Dysstasia [Not Recovered/Not Resolved]
  - Varicella zoster virus infection [Unknown]
  - Dyspepsia [Recovered/Resolved]
  - Dyskinesia [Not Recovered/Not Resolved]

NARRATIVE: CASE EVENT DATE: 20201001
